FAERS Safety Report 5894963-5 (Version None)
Quarter: 2008Q3

REPORT INFORMATION
  Report Type: 
  Country: None (occurrence: None)
  Receive Date: 20080924
  Receipt Date: 20080919
  Transmission Date: 20090109
  Serious: Yes (Death)
  Sender: FDA-Public Use
  Company Number: PHHY2008SE22095

PATIENT
  Sex: Female

DRUGS (2)
  1. ZOMETA [Suspect]
  2. SUTENT [Suspect]

REACTIONS (1)
  - DEATH [None]
